FAERS Safety Report 24416068 (Version 1)
Quarter: 2024Q4

REPORT INFORMATION
  Report Type: Spontaneous
  Country: US (occurrence: US)
  Receive Date: 20241009
  Receipt Date: 20241009
  Transmission Date: 20250115
  Serious: Yes (Hospitalization, Other)
  Sender: GRAVITI PHARMACEUTICALS
  Company Number: US-GRAVITIPHARMA-GRA-2409-US-LIT-0451

PATIENT
  Age: 54 Year
  Sex: Male

DRUGS (41)
  1. ATORVASTATIN CALCIUM [Suspect]
     Active Substance: ATORVASTATIN CALCIUM
     Indication: Middle cerebral artery stroke
     Route: 065
  2. ATORVASTATIN CALCIUM [Suspect]
     Active Substance: ATORVASTATIN CALCIUM
     Indication: Neuropathy peripheral
  3. ATORVASTATIN CALCIUM [Suspect]
     Active Substance: ATORVASTATIN CALCIUM
     Indication: Alcohol use disorder
  4. ATORVASTATIN CALCIUM [Suspect]
     Active Substance: ATORVASTATIN CALCIUM
     Indication: Major depression
  5. GABAPENTIN [Suspect]
     Active Substance: GABAPENTIN
     Indication: Middle cerebral artery stroke
     Route: 065
  6. GABAPENTIN [Suspect]
     Active Substance: GABAPENTIN
     Indication: Neuropathy peripheral
  7. GABAPENTIN [Suspect]
     Active Substance: GABAPENTIN
     Indication: Alcohol use disorder
  8. GABAPENTIN [Suspect]
     Active Substance: GABAPENTIN
     Indication: Major depression
  9. LORAZEPAM [Suspect]
     Active Substance: LORAZEPAM
     Indication: Middle cerebral artery stroke
     Route: 042
  10. LORAZEPAM [Suspect]
     Active Substance: LORAZEPAM
     Indication: Neuropathy peripheral
  11. LORAZEPAM [Suspect]
     Active Substance: LORAZEPAM
     Indication: Neuropathy peripheral
  12. LORAZEPAM [Suspect]
     Active Substance: LORAZEPAM
     Indication: Neuropathy peripheral
  13. CHLORDIAZEPOXIDE [Suspect]
     Active Substance: CHLORDIAZEPOXIDE
     Indication: Middle cerebral artery stroke
     Route: 048
  14. CHLORDIAZEPOXIDE [Suspect]
     Active Substance: CHLORDIAZEPOXIDE
     Indication: Neuropathy peripheral
  15. CHLORDIAZEPOXIDE [Suspect]
     Active Substance: CHLORDIAZEPOXIDE
     Indication: Alcohol use disorder
  16. CHLORDIAZEPOXIDE [Suspect]
     Active Substance: CHLORDIAZEPOXIDE
     Indication: Major depression
  17. ASPIRIN [Suspect]
     Active Substance: ASPIRIN
     Indication: Middle cerebral artery stroke
     Route: 065
  18. ASPIRIN [Suspect]
     Active Substance: ASPIRIN
     Indication: Neuropathy peripheral
  19. ASPIRIN [Suspect]
     Active Substance: ASPIRIN
     Indication: Alcohol use disorder
  20. ASPIRIN [Suspect]
     Active Substance: ASPIRIN
     Indication: Major depression
  21. METOPROLOL [Suspect]
     Active Substance: METOPROLOL
     Indication: Major depression
     Route: 065
  22. METOPROLOL [Suspect]
     Active Substance: METOPROLOL
     Indication: Alcohol use disorder
  23. METOPROLOL [Suspect]
     Active Substance: METOPROLOL
     Indication: Alcohol use disorder
  24. METOPROLOL [Suspect]
     Active Substance: METOPROLOL
     Indication: Alcohol use disorder
  25. DULOXETINE [Suspect]
     Active Substance: DULOXETINE
     Indication: Middle cerebral artery stroke
     Route: 065
  26. DULOXETINE [Suspect]
     Active Substance: DULOXETINE
     Indication: Neuropathy peripheral
  27. DULOXETINE [Suspect]
     Active Substance: DULOXETINE
     Indication: Alcohol use disorder
  28. DULOXETINE [Suspect]
     Active Substance: DULOXETINE
     Indication: Alcohol use disorder
  29. ACETAMINOPHEN [Suspect]
     Active Substance: ACETAMINOPHEN
     Indication: Major depression
     Route: 065
  30. ACETAMINOPHEN [Suspect]
     Active Substance: ACETAMINOPHEN
     Indication: Alcohol use disorder
  31. ACETAMINOPHEN [Suspect]
     Active Substance: ACETAMINOPHEN
     Indication: Neuropathy peripheral
  32. ACETAMINOPHEN [Suspect]
     Active Substance: ACETAMINOPHEN
     Indication: Middle cerebral artery stroke
  33. NALTREXONE [Suspect]
     Active Substance: NALTREXONE
     Indication: Middle cerebral artery stroke
     Route: 065
  34. NALTREXONE [Suspect]
     Active Substance: NALTREXONE
     Indication: Neuropathy peripheral
  35. NALTREXONE [Suspect]
     Active Substance: NALTREXONE
     Indication: Alcohol use disorder
  36. NALTREXONE [Suspect]
     Active Substance: NALTREXONE
     Indication: Major depression
  37. ACAMPROSATE [Suspect]
     Active Substance: ACAMPROSATE
     Indication: Major depression
     Route: 065
  38. ACAMPROSATE [Suspect]
     Active Substance: ACAMPROSATE
     Indication: Alcohol use disorder
  39. ACAMPROSATE [Suspect]
     Active Substance: ACAMPROSATE
     Indication: Neuropathy peripheral
  40. ACAMPROSATE [Suspect]
     Active Substance: ACAMPROSATE
     Indication: Middle cerebral artery stroke
  41. THIAMINE [Concomitant]
     Active Substance: THIAMINE
     Indication: Product used for unknown indication
     Route: 030

REACTIONS (1)
  - Delirium [Unknown]
